FAERS Safety Report 25636690 (Version 1)
Quarter: 2025Q3

REPORT INFORMATION
  Report Type: Spontaneous
  Country: US (occurrence: US)
  Receive Date: 20250804
  Receipt Date: 20250804
  Transmission Date: 20251021
  Serious: Yes (Other)
  Sender: BEIGENE
  Company Number: US-BEIGENE-BGN-2025-012535

PATIENT
  Age: 72 Year
  Weight: 52.1 kg

DRUGS (3)
  1. BRUKINSA [Interacting]
     Active Substance: ZANUBRUTINIB
     Indication: Waldenstrom^s macroglobulinaemia
  2. BRUKINSA [Interacting]
     Active Substance: ZANUBRUTINIB
  3. PREMPRO [Interacting]
     Active Substance: ESTROGENS, CONJUGATED\MEDROXYPROGESTERONE ACETATE
     Indication: Product used for unknown indication

REACTIONS (9)
  - Cardiac flutter [Not Recovered/Not Resolved]
  - Fatigue [Not Recovered/Not Resolved]
  - Rash [Recovered/Resolved]
  - Blister [Recovered/Resolved]
  - Skin discolouration [Recovered/Resolved]
  - Asthenia [Not Recovered/Not Resolved]
  - Dyspnoea [Not Recovered/Not Resolved]
  - Drug interaction [Unknown]
  - Therapeutic product effect decreased [Unknown]
